FAERS Safety Report 9351041 (Version 1)
Quarter: 2013Q2

REPORT INFORMATION
  Report Type: Spontaneous
  Country: FR (occurrence: FR)
  Receive Date: 20130617
  Receipt Date: 20130617
  Transmission Date: 20140414
  Serious: Yes (Other)
  Sender: FDA-Public Use
  Company Number: FR-BAUSCH-BL-2013-003475

PATIENT
  Age: 76 Year
  Sex: Female

DRUGS (1)
  1. CARTEOL [Suspect]
     Indication: GLAUCOMA
     Route: 047
     Dates: start: 20130527, end: 20130530

REACTIONS (2)
  - Medication error [Recovered/Resolved]
  - Asphyxia [Recovered/Resolved]
